FAERS Safety Report 5744405-5 (Version None)
Quarter: 2008Q2

REPORT INFORMATION
  Report Type: 
  Country: None (occurrence: None)
  Receive Date: 20080520
  Receipt Date: 20080514
  Transmission Date: 20081010
  Serious: Yes (Hospitalization)
  Sender: FDA-Public Use
  Company Number: US-ELI_LILLY_AND_COMPANY-US200805003247

PATIENT
  Age: 56 Year
  Sex: Male

DRUGS (5)
  1. HUMALOG [Suspect]
  2. HUMALOG [Suspect]
  3. HUMALOG [Suspect]
  4. SYMLIN [Concomitant]
  5. LEVEMIR [Concomitant]

REACTIONS (3)
  - INJECTION SITE HYPERSENSITIVITY [None]
  - SEPSIS [None]
  - URINARY TRACT INFECTION [None]
